FAERS Safety Report 9059617 (Version 1)
Quarter: 2013Q1

REPORT INFORMATION
  Report Type: Spontaneous
  Country: US (occurrence: None)
  Receive Date: 20130206
  Receipt Date: 20130206
  Transmission Date: 20140127
  Serious: Yes (Other)
  Sender: FDA-Public Use
  Company Number: None

PATIENT
  Age: 47 Year
  Sex: Female
  Weight: 53.52 kg

DRUGS (1)
  1. REMICADE [Suspect]
     Indication: COLITIS ULCERATIVE
     Dosage: NOT SURE  6 WEEKS  IV DRIP?6 TREATMENTS
     Route: 041
     Dates: start: 20120704, end: 20121219

REACTIONS (10)
  - Arthralgia [None]
  - Myalgia [None]
  - Local swelling [None]
  - Local swelling [None]
  - Joint swelling [None]
  - Oedema peripheral [None]
  - Joint swelling [None]
  - Local swelling [None]
  - Gait disturbance [None]
  - Inflammation [None]
